FAERS Safety Report 8861093 (Version 1)
Quarter: 2012Q4

REPORT INFORMATION
  Report Type: Spontaneous
  Country: JP (occurrence: None)
  Receive Date: 20121023
  Receipt Date: 20121023
  Transmission Date: 20130627
  Serious: Yes (Other)
  Sender: FDA-Public Use
  Company Number: JP-2012-3534

PATIENT
  Age: 40 Year
  Sex: Female

DRUGS (4)
  1. NAVELBINE [Suspect]
     Indication: LUNG ADENOCARCINOMA
     Route: 042
  2. CISPLATIN [Concomitant]
  3. PEMETREXED [Concomitant]
  4. ERLOTINIB HYDROCHLORIDE [Concomitant]

REACTIONS (1)
  - Interstitial lung disease [None]
